FAERS Safety Report 24903242 (Version 1)
Quarter: 2025Q1

REPORT INFORMATION
  Report Type: Spontaneous
  Country: US (occurrence: US)
  Receive Date: 20250130
  Receipt Date: 20250130
  Transmission Date: 20250409
  Serious: No
  Sender: AUROBINDO
  Company Number: US-AUROBINDO-AUR-APL-2024-005513

PATIENT
  Age: 80 Year
  Sex: Female
  Weight: 72.5 kg

DRUGS (1)
  1. LORAZEPAM [Suspect]
     Active Substance: LORAZEPAM
     Indication: Anxiety
     Dosage: UNK, TWO TIMES A DAY
     Route: 048

REACTIONS (4)
  - Anxiety [Unknown]
  - Malaise [Unknown]
  - Laziness [Unknown]
  - Anger [Unknown]
